FAERS Safety Report 12264827 (Version 1)
Quarter: 2016Q2

REPORT INFORMATION
  Report Type: Spontaneous
  Country: US (occurrence: US)
  Receive Date: 20160413
  Receipt Date: 20160413
  Transmission Date: 20160815
  Serious: No
  Sender: FDA-Public Use
  Company Number: US-JNJFOC-20160300182

PATIENT
  Age: 36 Year
  Sex: Male
  Weight: 77.11 kg

DRUGS (8)
  1. MULTIVITAMINS [Concomitant]
     Active Substance: VITAMINS
     Indication: NUTRITIONAL SUPPLEMENTATION
     Dosage: SINCE YEARS-DAILY
     Route: 065
  2. NIACIN. [Concomitant]
     Active Substance: NIACIN
     Indication: NUTRITIONAL SUPPLEMENTATION
     Dosage: SINCE YEARS-DAILY
     Route: 065
  3. VIAGRA [Concomitant]
     Active Substance: SILDENAFIL CITRATE
     Indication: PRODUCT USED FOR UNKNOWN INDICATION
     Dosage: AS NEEDED
     Route: 065
  4. TYLENOL [Suspect]
     Active Substance: ACETAMINOPHEN
     Route: 048
  5. RISPERDAL [Concomitant]
     Active Substance: RISPERIDONE
     Indication: SCHIZOPHRENIA
     Dosage: SINCE 2001-3MG NIGHTLY
     Route: 065
  6. GINKGO [Concomitant]
     Active Substance: GINKGO
     Indication: NUTRITIONAL SUPPLEMENTATION
     Dosage: SINCE YEARS- DAILY
     Route: 065
  7. NEFAZODONE [Concomitant]
     Active Substance: NEFAZODONE
     Indication: SCHIZOPHRENIA
     Dosage: SINCE 2001- 75MG NIGHTLY
     Route: 065
  8. TYLENOL [Suspect]
     Active Substance: ACETAMINOPHEN
     Indication: HEADACHE
     Dosage: 2 TABLETS-AS NEEDED
     Route: 048

REACTIONS (1)
  - Insomnia [Unknown]
